FAERS Safety Report 16899176 (Version 1)
Quarter: 2019Q4

REPORT INFORMATION
  Report Type: Spontaneous
  Country: US (occurrence: US)
  Receive Date: 20190815
  Receipt Date: 20190815
  Transmission Date: 20200122
  Serious: Yes (Hospitalization)
  Sender: FDA-Public Use
  Company Number: None

PATIENT
  Age: 50 Year
  Sex: Female

DRUGS (1)
  1. COSENTYX [Suspect]
     Active Substance: SECUKINUMAB
     Indication: SKIN DISORDER
     Route: 058
     Dates: start: 20170306

REACTIONS (3)
  - Insurance issue [None]
  - Therapy cessation [None]
  - Arthropod bite [None]

NARRATIVE: CASE EVENT DATE: 20190813
